FAERS Safety Report 11990197 (Version 3)
Quarter: 2016Q2

REPORT INFORMATION
  Report Type: Spontaneous
  Country: US (occurrence: US)
  Receive Date: 20160202
  Receipt Date: 20160405
  Transmission Date: 20160815
  Serious: No
  Sender: FDA-Public Use
  Company Number: US-009507513-1602USA000773

PATIENT
  Age: 24 Year
  Sex: Female
  Weight: 101.1 kg

DRUGS (1)
  1. NEXPLANON [Suspect]
     Active Substance: ETONOGESTREL
     Dosage: 1 STANDARD PACKAGE PREFLAPP OF 1
     Route: 059
     Dates: start: 20141217, end: 20160129

REACTIONS (3)
  - Implant site pain [Unknown]
  - Product quality issue [Unknown]
  - Device kink [Recovered/Resolved]

NARRATIVE: CASE EVENT DATE: 20160126
